FAERS Safety Report 8510907-1 (Version None)
Quarter: 2012Q2

REPORT INFORMATION
  Report Type: 
  Country: None (occurrence: None)
  Receive Date: 20120406
  Receipt Date: 20120202
  Transmission Date: 20120825
  Serious: Yes (Hospitalization)
  Sender: FDA-Public Use
  Company Number: US-CYPR-2012-000001

PATIENT
  Sex: Female
  Weight: 47.1741 kg

DRUGS (19)
  1. SYMBICORT [Concomitant]
  2. COREG [Concomitant]
  3. TRAZODONE HYDROCHLORIDE [Concomitant]
  4. LISINOPRIL [Concomitant]
  5. LASIX [Concomitant]
  6. NOVOLIN 70/30 [Concomitant]
  7. OMEPRAZOLE [Concomitant]
  8. DULOXETIME HYDROCHLORIDE [Concomitant]
  9. NOVOLOG [Concomitant]
  10. METFORMIN HYDROCHLORIDE [Concomitant]
  11. LORATADINE [Concomitant]
  12. NICODERM [Concomitant]
  13. AMIODARONE HCL [Concomitant]
  14. ZOCOR [Concomitant]
  15. WARFARIN SODIUM [Concomitant]
  16. LEXAPRO [Concomitant]
  17. CYPER STENT [Concomitant]
  18. ASPIRIN [Suspect]
     Indication: CORONARY ARTERY DISEASE
     Dosage: 81 MG ORAL
     Route: 048
     Dates: start: 20110101
  19. LIPITOR [Concomitant]

REACTIONS (1)
  - RESPIRATORY DISTRESS [None]
